FAERS Safety Report 21389987 (Version 1)
Quarter: 2022Q3

REPORT INFORMATION
  Report Type: Report from Study
  Country: US (occurrence: US)
  Receive Date: 20220929
  Receipt Date: 20220929
  Transmission Date: 20221027
  Serious: No
  Sender: FDA-Public Use
  Company Number: US-NOVARTISTESTPH-NVSC2022US219742

PATIENT
  Sex: Male

DRUGS (2)
  1. ILARIS [Suspect]
     Active Substance: CANAKINUMAB
     Indication: Pyrexia
     Dosage: 90 MG, QMO
     Route: 058
     Dates: start: 202001
  2. ILARIS [Suspect]
     Active Substance: CANAKINUMAB
     Dosage: 95.4 MG
     Route: 058
     Dates: start: 20220923

REACTIONS (1)
  - Incorrect dose administered [Unknown]
